FAERS Safety Report 4940681-7 (Version None)
Quarter: 2006Q1

REPORT INFORMATION
  Report Type: 
  Country: None (occurrence: None)
  Receive Date: 20060127
  Receipt Date: 20051011
  Transmission Date: 20060701
  Serious: Yes (Other)
  Sender: FDA-Public Use
  Company Number: 2005141587

PATIENT
  Age: 44 Year
  Sex: Male
  Weight: 63.5036 kg

DRUGS (3)
  1. LYRICA [Suspect]
     Indication: MULTIPLE SCLEROSIS
     Dosage: 450 MG (150 MG, 3 IN 1 D), ORAL
     Route: 048
     Dates: start: 20051008
  2. RESTORIL [Concomitant]
  3. INTERFERON BETA-1A (INTERFERON BETA) [Concomitant]

REACTIONS (3)
  - DRUG INEFFECTIVE [None]
  - DYSSTASIA [None]
  - PAIN [None]
